FAERS Safety Report 4707356-0 (Version None)
Quarter: 2005Q3

REPORT INFORMATION
  Report Type: 
  Country: None (occurrence: None)
  Receive Date: 20050705
  Receipt Date: 20050628
  Transmission Date: 20060218
  Serious: Yes (Death)
  Sender: FDA-Public Use
  Company Number: 2005S1005495

PATIENT
  Age: 55 Year
  Sex: Male

DRUGS (11)
  1. FENTANYL [Suspect]
     Indication: CANCER PAIN
     Dosage: 25MCG/HR Q3D TDER
     Route: 062
     Dates: start: 20050513, end: 20050516
  2. FENTANYL [Suspect]
     Dosage: 50 MCG/HR Q3D TDER
     Route: 062
     Dates: start: 20050513, end: 20050521
  3. MORPHINE SULFATE [Concomitant]
  4. LORAZEPAM [Concomitant]
  5. PROCHLORPERAZINE [Concomitant]
  6. EDISYLATE [Concomitant]
  7. DOCUSATE SODIUM [Concomitant]
  8. CASANTHRANOL [Concomitant]
  9. FLUCONAZOLE [Concomitant]
  10. LISINOPRIL [Concomitant]
  11. GRADE 1 MOUTH RINSE [Concomitant]

REACTIONS (7)
  - BLOOD PRESSURE SYSTOLIC DECREASED [None]
  - CARDIAC ARREST [None]
  - CARDIOMEGALY [None]
  - DEHYDRATION [None]
  - DISTURBANCE IN ATTENTION [None]
  - LETHARGY [None]
  - SOMNOLENCE [None]
